FAERS Safety Report 14535514 (Version 1)
Quarter: 2018Q1

REPORT INFORMATION
  Report Type: Spontaneous
  Country: US (occurrence: US)
  Receive Date: 20180214
  Receipt Date: 20180214
  Transmission Date: 20180509
  Serious: No
  Sender: FDA-Public Use
  Company Number: None

PATIENT
  Age: 61 Year
  Sex: Female

DRUGS (6)
  1. DICLOFENAC/MISOPROSTOL [Concomitant]
     Active Substance: DICLOFENAC SODIUM\MISOPROSTOL
  2. TOPIRAMATE. [Concomitant]
     Active Substance: TOPIRAMATE
  3. EZETIMIBE. [Concomitant]
     Active Substance: EZETIMIBE
  4. BUPROPION. [Concomitant]
     Active Substance: BUPROPION
  5. DULOXETINE. [Concomitant]
     Active Substance: DULOXETINE
  6. LANSOPRAZOLE. [Suspect]
     Active Substance: LANSOPRAZOLE
     Route: 048
     Dates: start: 20171120, end: 20171120

REACTIONS (1)
  - Drug effect incomplete [None]

NARRATIVE: CASE EVENT DATE: 20180207
